FAERS Safety Report 19918477 (Version 2)
Quarter: 2021Q4

REPORT INFORMATION
  Report Type: Report from Study
  Country: NL (occurrence: NL)
  Receive Date: 20211004
  Receipt Date: 20211021
  Transmission Date: 20220303
  Serious: Yes (Other)
  Sender: FDA-Public Use
  Company Number: 2021A752214

PATIENT
  Age: 59 Year
  Sex: Male

DRUGS (20)
  1. TRASTUZUMAB DERUXTECAN [Suspect]
     Active Substance: TRASTUZUMAB DERUXTECAN
     Indication: HER2 positive gastric cancer
     Route: 042
     Dates: start: 20210421, end: 20210421
  2. TRASTUZUMAB DERUXTECAN [Suspect]
     Active Substance: TRASTUZUMAB DERUXTECAN
     Indication: HER2 positive gastric cancer
     Route: 042
     Dates: start: 20210512, end: 20210512
  3. TRASTUZUMAB DERUXTECAN [Suspect]
     Active Substance: TRASTUZUMAB DERUXTECAN
     Indication: HER2 positive gastric cancer
     Route: 042
     Dates: start: 20210602, end: 20210602
  4. TRASTUZUMAB DERUXTECAN [Suspect]
     Active Substance: TRASTUZUMAB DERUXTECAN
     Indication: HER2 positive gastric cancer
     Route: 042
     Dates: start: 20210623, end: 20210623
  5. DURVALUMAB [Suspect]
     Active Substance: DURVALUMAB
     Indication: HER2 positive gastric cancer
     Route: 042
     Dates: start: 20210421, end: 20210421
  6. DURVALUMAB [Suspect]
     Active Substance: DURVALUMAB
     Indication: HER2 positive gastric cancer
     Route: 042
     Dates: start: 20210512, end: 20210512
  7. DURVALUMAB [Suspect]
     Active Substance: DURVALUMAB
     Indication: HER2 positive gastric cancer
     Route: 042
     Dates: start: 20210602, end: 20210602
  8. CAPECITABINE [Suspect]
     Active Substance: CAPECITABINE
     Indication: HER2 positive gastric cancer
     Route: 048
     Dates: start: 20210421, end: 20210504
  9. CAPECITABINE [Suspect]
     Active Substance: CAPECITABINE
     Indication: HER2 positive gastric cancer
     Route: 048
     Dates: start: 20210513, end: 20210526
  10. CAPECITABINE [Suspect]
     Active Substance: CAPECITABINE
     Indication: HER2 positive gastric cancer
     Route: 048
     Dates: start: 20210602, end: 20210615
  11. CAPECITABINE [Suspect]
     Active Substance: CAPECITABINE
     Indication: HER2 positive gastric cancer
     Route: 048
     Dates: start: 20210720, end: 20210802
  12. EDOXABAN TOSYLATE [Concomitant]
     Active Substance: EDOXABAN TOSYLATE
     Indication: Deep vein thrombosis
     Route: 048
     Dates: start: 20200801
  13. ONDANSETRON [Concomitant]
     Active Substance: ONDANSETRON
     Indication: Premedication
     Route: 048
     Dates: start: 20210428
  14. ONDANSETRON [Concomitant]
     Active Substance: ONDANSETRON
     Indication: Prophylaxis of nausea and vomiting
     Route: 048
     Dates: start: 20210428
  15. ONDANSETRON [Concomitant]
     Active Substance: ONDANSETRON
     Indication: Nausea
     Route: 048
     Dates: start: 20210428
  16. FENTANYL [Concomitant]
     Active Substance: FENTANYL
     Indication: Pain prophylaxis
     Dosage: 1.0 PATCH, 25 MICROGRAM/HOUR EVERY 3 DAYS
     Route: 003
     Dates: start: 20210421
  17. METOCLOPRAMIDE [Concomitant]
     Active Substance: METOCLOPRAMIDE
     Indication: Nausea
     Route: 048
     Dates: start: 20210428
  18. DEXAMETHASONE [Concomitant]
     Active Substance: DEXAMETHASONE
     Indication: Nausea
     Route: 048
     Dates: start: 20210505
  19. PREDNISONE [Concomitant]
     Active Substance: PREDNISONE
     Indication: Blood bilirubin increased
     Route: 048
     Dates: start: 20210630, end: 20210706
  20. BACLOFEN [Concomitant]
     Active Substance: BACLOFEN
     Indication: Muscle spasms
     Route: 048
     Dates: start: 20210618

REACTIONS (1)
  - Drug-induced liver injury [Recovered/Resolved]

NARRATIVE: CASE EVENT DATE: 20210630
